FAERS Safety Report 6934798-5 (Version None)
Quarter: 2010Q3

REPORT INFORMATION
  Report Type: 
  Country: None (occurrence: None)
  Receive Date: 20100820
  Receipt Date: 20100805
  Transmission Date: 20110219
  Serious: Yes (Hospitalization, Other)
  Sender: FDA-Public Use
  Company Number: PHEH2010US00986

PATIENT
  Sex: Female

DRUGS (9)
  1. GLEEVEC [Suspect]
     Dosage: 100 MG, BID
     Dates: start: 20060101
  2. GLEEVEC [Suspect]
     Dosage: 200 MG EVERY NIGHT
  3. COUMADIN [Interacting]
     Indication: HEART RATE IRREGULAR
     Dosage: UNK
  4. AMLODIPINE [Concomitant]
  5. LOTREL [Concomitant]
  6. ZETIA [Concomitant]
  7. LIPITOR [Concomitant]
  8. LEVOTHYROXINE SODIUM [Concomitant]
  9. ASPIRIN [Concomitant]

REACTIONS (7)
  - BLOOD VISCOSITY INCREASED [None]
  - COAGULATION TEST ABNORMAL [None]
  - FEELING ABNORMAL [None]
  - HEART RATE IRREGULAR [None]
  - HEART VALVE INCOMPETENCE [None]
  - MALAISE [None]
  - SYNCOPE [None]
